FAERS Safety Report 5656175-X (Version None)
Quarter: 2008Q1

REPORT INFORMATION
  Report Type: 
  Country: None (occurrence: None)
  Receive Date: 20080305
  Receipt Date: 20080225
  Transmission Date: 20080703
  Serious: Yes (Hospitalization)
  Sender: FDA-Public Use
  Company Number: 009-21880-08020868

PATIENT
  Age: 64 Year
  Sex: Female
  Weight: 89 kg

DRUGS (1)
  1. REVLIMID [Suspect]
     Indication: MULTIPLE MYELOMA
     Dosage: 25 MG, DAILY, ORAL
     Route: 048
     Dates: start: 20080115, end: 20080205

REACTIONS (2)
  - VASCULITIS [None]
  - VIRAL UPPER RESPIRATORY TRACT INFECTION [None]
